FAERS Safety Report 9274783 (Version 2)
Quarter: 2013Q3

REPORT INFORMATION
  Report Type: Spontaneous
  Country: US (occurrence: US)
  Receive Date: 20130507
  Receipt Date: 20130808
  Transmission Date: 20140515
  Serious: Yes (Hospitalization, Disabling)
  Sender: FDA-Public Use
  Company Number: US-009507513-2012SP024035

PATIENT
  Age: 55 Year
  Sex: Male
  Weight: 90.9 kg

DRUGS (1)
  1. DULERA [Suspect]
     Indication: ASTHMA
     Dosage: 1 SPRAY, QAM
     Route: 045
     Dates: start: 201101, end: 201103

REACTIONS (5)
  - Sinus disorder [Unknown]
  - Muscle disorder [Unknown]
  - Pain [Unknown]
  - Arthritis [Unknown]
  - Back disorder [Unknown]
